FAERS Safety Report 5611808-9 (Version None)
Quarter: 2008Q1

REPORT INFORMATION
  Report Type: 
  Country: None (occurrence: None)
  Receive Date: 20080204
  Receipt Date: 20071108
  Transmission Date: 20080703
  Serious: No
  Sender: FDA-Public Use
  Company Number: US-BAYER-US-2007-042565

PATIENT
  Age: 16 Year
  Sex: Female

DRUGS (3)
  1. YASMIN [Suspect]
     Indication: MENSTRUATION IRREGULAR
     Route: 048
     Dates: start: 20071016
  2. SINGULAIR [Concomitant]
  3. ZYRTEC [Concomitant]

REACTIONS (1)
  - HEADACHE [None]
